FAERS Safety Report 5531684-2 (Version None)
Quarter: 2007Q4

REPORT INFORMATION
  Report Type: 
  Country: None (occurrence: None)
  Receive Date: 20071128
  Receipt Date: 20071112
  Transmission Date: 20080405
  Serious: Yes (Hospitalization)
  Sender: FDA-Public Use
  Company Number: S07-GER-06057-01

PATIENT
  Age: 70 Year
  Sex: Female

DRUGS (6)
  1. ESCITALOPRAM [Suspect]
     Indication: MAJOR DEPRESSION
     Dosage: 20 MG QD PO
     Route: 048
     Dates: start: 20070331, end: 20070424
  2. MIRTAZAPINE [Concomitant]
  3. LORAZEPAM [Concomitant]
  4. ZYPREXA [Concomitant]
  5. ENALAPRIL [Concomitant]
  6. AMLODIPINE [Concomitant]

REACTIONS (12)
  - BALANCE DISORDER [None]
  - CEREBRAL ATROPHY [None]
  - CEREBRAL ISCHAEMIA [None]
  - CONDITION AGGRAVATED [None]
  - DEPRESSION [None]
  - GAIT DISTURBANCE [None]
  - GENERAL PHYSICAL HEALTH DETERIORATION [None]
  - MASKED FACIES [None]
  - PSYCHOMOTOR RETARDATION [None]
  - STUPOR [None]
  - TRANSIENT ISCHAEMIC ATTACK [None]
  - TREMOR [None]
